FAERS Safety Report 25956472 (Version 1)
Quarter: 2025Q4

REPORT INFORMATION
  Report Type: Report from Study
  Country: CA (occurrence: CA)
  Receive Date: 20251024
  Receipt Date: 20251024
  Transmission Date: 20260118
  Serious: Yes (Hospitalization)
  Sender: ABBVIE
  Company Number: CA-ABBVIE-6512381

PATIENT
  Age: 34 Year
  Sex: Male

DRUGS (2)
  1. RINVOQ [Suspect]
     Active Substance: UPADACITINIB
     Indication: Crohn^s disease
     Dosage: COATED TABLET
     Route: 048
  2. RINVOQ [Suspect]
     Active Substance: UPADACITINIB
     Indication: Crohn^s disease
     Route: 048

REACTIONS (5)
  - Upper gastrointestinal haemorrhage [Unknown]
  - Crohn^s disease [Unknown]
  - Drug ineffective [Unknown]
  - Whipple^s disease [Unknown]
  - Ulcer [Recovering/Resolving]

NARRATIVE: CASE EVENT DATE: 20250101
